FAERS Safety Report 6012823-6 (Version None)
Quarter: 2008Q4

REPORT INFORMATION
  Report Type: 
  Country: None (occurrence: None)
  Receive Date: 20081219
  Receipt Date: 20081212
  Transmission Date: 20090506
  Serious: Yes (Other)
  Sender: FDA-Public Use
  Company Number: US-BAYER-200837110NA

PATIENT
  Sex: Female
  Weight: 51 kg

DRUGS (1)
  1. MIRENA [Suspect]
     Indication: CONTRACEPTION
     Route: 015
     Dates: start: 20081023, end: 20081024

REACTIONS (3)
  - COMPLICATION OF DEVICE INSERTION [None]
  - SMALL INTESTINAL PERFORATION [None]
  - UTERINE RUPTURE [None]
